FAERS Safety Report 5677904-5 (Version None)
Quarter: 2008Q1

REPORT INFORMATION
  Report Type: 
  Country: None (occurrence: None)
  Receive Date: 20080319
  Receipt Date: 20080303
  Transmission Date: 20080703
  Serious: Yes (Hospitalization)
  Sender: FDA-Public Use
  Company Number: 440001M08USA

PATIENT
  Sex: Male

DRUGS (1)
  1. SEROSTIM [Suspect]
     Indication: HIV WASTING SYNDROME
     Dates: start: 20080101, end: 20080201

REACTIONS (5)
  - CONDITION AGGRAVATED [None]
  - GASTROINTESTINAL INFECTION [None]
  - NEUROPATHY PERIPHERAL [None]
  - OEDEMA PERIPHERAL [None]
  - WEIGHT DECREASED [None]
